FAERS Safety Report 21295477 (Version 1)
Quarter: 2022Q3

REPORT INFORMATION
  Report Type: Report from Study
  Country: CA (occurrence: CA)
  Receive Date: 20220905
  Receipt Date: 20220905
  Transmission Date: 20221027
  Serious: Yes (Other)
  Sender: FDA-Public Use
  Company Number: CA-NOVARTISPH-NVSC2022CA196979

PATIENT
  Sex: Male

DRUGS (1)
  1. PIRFENIDONE [Suspect]
     Active Substance: PIRFENIDONE
     Indication: Interstitial lung disease
     Dosage: UNK
     Route: 065

REACTIONS (10)
  - Bladder cancer [Unknown]
  - Pneumonia [Unknown]
  - Hypoventilation [Unknown]
  - Interstitial lung disease [Unknown]
  - Disease progression [Unknown]
  - Head discomfort [Unknown]
  - Cough [Unknown]
  - Lung diffusion test decreased [Unknown]
  - Blood carbon monoxide decreased [Unknown]
  - Respiratory gas exchange disorder [Unknown]
